FAERS Safety Report 7656519-3 (Version None)
Quarter: 2011Q3

REPORT INFORMATION
  Report Type: 
  Country: None (occurrence: None)
  Receive Date: 20110804
  Receipt Date: 20101011
  Transmission Date: 20111222
  Serious: No
  Sender: FDA-Public Use
  Company Number: US-BAUSCH-2010BL005750

PATIENT
  Sex: Male

DRUGS (3)
  1. REFRESH [Concomitant]
     Indication: DRY EYE
     Route: 047
  2. OPCON-A [Suspect]
     Indication: OCULAR HYPERAEMIA
     Route: 047
  3. COSOPT [Concomitant]
     Indication: INTRAOCULAR PRESSURE INCREASED
     Route: 047
     Dates: start: 19950101

REACTIONS (2)
  - OCULAR HYPERAEMIA [None]
  - CONDITION AGGRAVATED [None]
